FAERS Safety Report 8061953-6 (Version None)
Quarter: 2012Q1

REPORT INFORMATION
  Report Type: 
  Country: None (occurrence: None)
  Receive Date: 20120117
  Receipt Date: 20120109
  Transmission Date: 20120608
  Serious: Yes (Disabling, Other)
  Sender: FDA-Public Use
  Company Number: 20012MA000356

PATIENT
  Sex: Female

DRUGS (1)
  1. METOCLOPRAMIDE [Suspect]
     Indication: PRODUCT USED FOR UNKNOWN INDICATION
     Dosage: ;UNK;UNK

REACTIONS (12)
  - DEPRESSION [None]
  - AKATHISIA [None]
  - VISUAL IMPAIRMENT [None]
  - INJURY [None]
  - EXTRAPYRAMIDAL DISORDER [None]
  - PAIN [None]
  - DYSTONIA [None]
  - NERVOUS SYSTEM DISORDER [None]
  - TARDIVE DYSKINESIA [None]
  - EMOTIONAL DISORDER [None]
  - SUICIDAL IDEATION [None]
  - METABOLIC DISORDER [None]
